FAERS Safety Report 19318604 (Version 4)
Quarter: 2021Q3

REPORT INFORMATION
  Report Type: Spontaneous
  Country: ES (occurrence: ES)
  Receive Date: 20210527
  Receipt Date: 20210727
  Transmission Date: 20211014
  Serious: Yes (Other)
  Sender: FDA-Public Use
  Company Number: ES-ELI_LILLY_AND_COMPANY-ES202105007993

PATIENT
  Sex: Female

DRUGS (2)
  1. TALTZ [Suspect]
     Active Substance: IXEKIZUMAB
     Dosage: 80 MG, OTHER (EVERY 3 WEEKS)
     Route: 058
  2. TALTZ [Suspect]
     Active Substance: IXEKIZUMAB
     Indication: PSORIASIS
     Dosage: 80 MG, OTHER (EVERY THREE WEEKS)
     Route: 058
     Dates: start: 20200616

REACTIONS (4)
  - Colon neoplasm [Not Recovered/Not Resolved]
  - Anxiety [Recovering/Resolving]
  - Inappropriate schedule of product administration [Unknown]
  - Polyp [Not Recovered/Not Resolved]
